FAERS Safety Report 6112274-X (Version None)
Quarter: 2009Q1

REPORT INFORMATION
  Report Type: 
  Country: None (occurrence: None)
  Receive Date: 20090311
  Receipt Date: 20090311
  Transmission Date: 20090719
  Serious: Yes (Other)
  Sender: FDA-Public Use
  Company Number: None

PATIENT
  Sex: Female
  Weight: 63.05 kg

DRUGS (2)
  1. OCELLA [Suspect]
     Indication: ACNE CYSTIC
     Dosage: ONCE QD PO
     Route: 048
     Dates: start: 20080701, end: 20090101
  2. OCELLA [Suspect]
     Indication: CONTRACEPTION
     Dosage: ONCE QD PO
     Route: 048
     Dates: start: 20080701, end: 20090101

REACTIONS (2)
  - DYSFUNCTIONAL UTERINE BLEEDING [None]
  - PRODUCT QUALITY ISSUE [None]
